FAERS Safety Report 9518002 (Version 1)
Quarter: 2013Q3

REPORT INFORMATION
  Report Type: Spontaneous
  Country: US (occurrence: US)
  Receive Date: 20130912
  Receipt Date: 20130912
  Transmission Date: 20140515
  Serious: No
  Sender: FDA-Public Use
  Company Number: US-PFIZER INC-2013260892

PATIENT
  Sex: Female

DRUGS (2)
  1. COLESTID [Suspect]
     Indication: DIARRHOEA
     Dosage: UNK
  2. COLESTID [Suspect]
     Indication: IRRITABLE BOWEL SYNDROME

REACTIONS (1)
  - Drug ineffective for unapproved indication [Unknown]
